FAERS Safety Report 6336489-0 (Version None)
Quarter: 2009Q3

REPORT INFORMATION
  Report Type: 
  Country: None (occurrence: None)
  Receive Date: 20090901
  Receipt Date: 20090826
  Transmission Date: 20100115
  Serious: Yes (Hospitalization)
  Sender: FDA-Public Use
  Company Number: B0590408A

PATIENT
  Sex: Female

DRUGS (1)
  1. AUGMENTIN [Suspect]
     Indication: URINARY TRACT INFECTION
     Dosage: 500MG THREE TIMES PER DAY
     Route: 048
     Dates: start: 20090101, end: 20090101

REACTIONS (6)
  - BLOOD BILIRUBIN INCREASED [None]
  - HEPATITIS ACUTE [None]
  - JAUNDICE [None]
  - PRURITUS [None]
  - RASH PUSTULAR [None]
  - TRANSAMINASES INCREASED [None]
